FAERS Safety Report 12903194 (Version 1)
Quarter: 2016Q4

REPORT INFORMATION
  Report Type: Spontaneous
  Country: JP (occurrence: JP)
  Receive Date: 20161102
  Receipt Date: 20161102
  Transmission Date: 20170207
  Serious: Yes (Hospitalization)
  Sender: FDA-Public Use
  Company Number: JP-PFIZER INC-2016505977

PATIENT
  Sex: Male

DRUGS (2)
  1. AMLODIN [Suspect]
     Active Substance: AMLODIPINE BESYLATE
     Dosage: UNK
     Route: 048
  2. SERENACE [Suspect]
     Active Substance: HALOPERIDOL
     Dosage: 50 DF, SINGLE
     Route: 048

REACTIONS (2)
  - Overdose [Unknown]
  - Coma [Unknown]
